FAERS Safety Report 16818745 (Version 2)
Quarter: 2019Q3

REPORT INFORMATION
  Report Type: Spontaneous
  Country: IR (occurrence: IR)
  Receive Date: 20190917
  Receipt Date: 20190917
  Transmission Date: 20191005
  Serious: Yes (Life-Threatening, Hospitalization, Other)
  Sender: FDA-Public Use
  Company Number: PHHY2019IR215214

PATIENT
  Age: 19 Year
  Sex: Male

DRUGS (3)
  1. VITAMIN K [Suspect]
     Active Substance: PHYTONADIONE
     Indication: THALASSAEMIA
     Dosage: UNK
     Route: 051
  2. CICLOSPORIN [Suspect]
     Active Substance: CYCLOSPORINE
     Indication: THALASSAEMIA
     Dosage: UNK
     Route: 051
  3. TACROLIMUS. [Suspect]
     Active Substance: TACROLIMUS
     Indication: THALASSAEMIA
     Dosage: UNK
     Route: 051

REACTIONS (6)
  - Dyspnoea [Recovered/Resolved]
  - Product use in unapproved indication [Unknown]
  - Pruritus [Recovered/Resolved]
  - Anaphylactic reaction [Recovered/Resolved]
  - Hypotension [Recovered/Resolved]
  - Flushing [Recovered/Resolved]
